FAERS Safety Report 14593311 (Version 1)
Quarter: 2018Q1

REPORT INFORMATION
  Report Type: Spontaneous
  Country: US (occurrence: US)
  Receive Date: 20180301
  Receipt Date: 20180301
  Transmission Date: 20180509
  Serious: No
  Sender: FDA-Public Use
  Company Number: None

PATIENT
  Age: 57 Year
  Sex: Female

DRUGS (1)
  1. HUMIRA [Suspect]
     Active Substance: ADALIMUMAB
     Indication: UVEITIS
     Dosage: ONE PEN (40MG) EVERY 2 WEEKS SUBCUTANEOUSLY
     Route: 058
     Dates: start: 20170330

REACTIONS (1)
  - Rash [None]

NARRATIVE: CASE EVENT DATE: 20180227
